FAERS Safety Report 4626564-0 (Version None)
Quarter: 2005Q1

REPORT INFORMATION
  Report Type: 
  Country: None (occurrence: None)
  Receive Date: 20050330
  Receipt Date: 20050309
  Transmission Date: 20050727
  Serious: Yes (Hospitalization)
  Sender: FDA-Public Use
  Company Number: US_0409106152

PATIENT
  Age: 29 Year
  Sex: Female
  Weight: 102 kg

DRUGS (21)
  1. HUMALOG MIX 75/25 [Suspect]
     Indication: DIABETES MELLITUS
     Dosage: 25 U DAY
     Dates: end: 20040105
  2. ZYPREXA [Suspect]
     Indication: DEPRESSION
     Dosage: 10 MG
     Dates: start: 19980922, end: 20040706
  3. ASPIRIN [Concomitant]
  4. RISPERDAL [Concomitant]
  5. CLARITIN [Concomitant]
  6. BEXTRA [Concomitant]
  7. DIOVAN [Concomitant]
  8. NAPROXEN SODIUM [Concomitant]
  9. OMNICEF [Concomitant]
  10. FLEXERIL [Concomitant]
  11. CELEXA [Concomitant]
  12. KEFLEX [Concomitant]
  13. ALBUTEROL [Concomitant]
  14. PREVACID [Concomitant]
  15. FLUTICASONE PROPIONATE [Concomitant]
  16. SALMETEROL [Concomitant]
  17. SINGULAIR (MONTELUKAST) [Concomitant]
  18. WELLBUTRIN [Concomitant]
  19. XANAX (ALPRAZOLAM DUM) [Concomitant]
  20. TIZANIDINE [Concomitant]
  21. GLUCOPHAGE [Concomitant]

REACTIONS (25)
  - APPENDICECTOMY [None]
  - ARTHRALGIA [None]
  - CELLULITIS [None]
  - COLD SWEAT [None]
  - DIABETES MELLITUS INSULIN-DEPENDENT [None]
  - DIZZINESS [None]
  - FEELING HOT [None]
  - GASTROINTESTINAL DISORDER [None]
  - HAEMATOMA [None]
  - HYPOAESTHESIA [None]
  - INFECTION [None]
  - INGROWING NAIL [None]
  - INTERVERTEBRAL DISC PROTRUSION [None]
  - LOWER RESPIRATORY TRACT INFECTION [None]
  - MITRAL VALVE INCOMPETENCE [None]
  - NECK PAIN [None]
  - OEDEMA PERIPHERAL [None]
  - PAIN [None]
  - PARAESTHESIA [None]
  - RASH [None]
  - REFUSAL OF EXAMINATION [None]
  - SCAB [None]
  - SINUS TACHYCARDIA [None]
  - TRICUSPID VALVE INCOMPETENCE [None]
  - VENTRICULAR HYPERTROPHY [None]
